FAERS Safety Report 12782773 (Version 1)
Quarter: 2016Q3

REPORT INFORMATION
  Report Type: Spontaneous
  Country: US (occurrence: US)
  Receive Date: 20160926
  Receipt Date: 20160926
  Transmission Date: 20161109
  Serious: Yes (Other)
  Sender: FDA-Public Use
  Company Number: None

PATIENT
  Age: 68 Year
  Sex: Female
  Weight: 92.25 kg

DRUGS (6)
  1. BUDESINIDES [Concomitant]
  2. HUMIRA [Concomitant]
     Active Substance: ADALIMUMAB
  3. HYOSCYAMINE SULFATE. [Suspect]
     Active Substance: HYOSCYAMINE SULFATE
     Indication: PAIN
     Dosage: OTHER ROUTE:DISSOLVED ON TONGUE?
     Dates: start: 20160125, end: 20160125
  4. VITAMIN D3 [Concomitant]
     Active Substance: CHOLECALCIFEROL
  5. HYOSCYAMINE SULFATE. [Suspect]
     Active Substance: HYOSCYAMINE SULFATE
     Indication: COLITIS ULCERATIVE
     Dosage: OTHER ROUTE:DISSOLVED ON TONGUE?
     Dates: start: 20160125, end: 20160125
  6. HYOSCYAMINE SULFATE. [Suspect]
     Active Substance: HYOSCYAMINE SULFATE
     Indication: MUSCLE SPASMS
     Dosage: OTHER ROUTE:DISSOLVED ON TONGUE?
     Dates: start: 20160125, end: 20160125

REACTIONS (4)
  - Halo vision [None]
  - Palpitations [None]
  - Photopsia [None]
  - Migraine [None]

NARRATIVE: CASE EVENT DATE: 20160125
